FAERS Safety Report 7371696-X (Version None)
Quarter: 2011Q1

REPORT INFORMATION
  Report Type: 
  Country: None (occurrence: None)
  Receive Date: 20110324
  Receipt Date: 20110315
  Transmission Date: 20110831
  Serious: Yes (Other)
  Sender: FDA-Public Use
  Company Number: US-ASTRAZENECA-2011SE14510

PATIENT
  Age: 44 Year
  Sex: Female
  Weight: 58 kg

DRUGS (8)
  1. CHANTIX [Suspect]
     Route: 048
     Dates: start: 20110201
  2. SEROQUEL [Suspect]
     Indication: BIPOLAR DISORDER
     Dosage: AS REQUIRED
     Route: 048
  3. CHANTIX [Suspect]
     Indication: SMOKING CESSATION THERAPY
     Route: 048
     Dates: start: 20050101
  4. IBUPROFEN [Concomitant]
     Indication: PAIN
  5. TOPAMAX [Concomitant]
     Indication: MIGRAINE
  6. ZOLOFT [Concomitant]
     Indication: DEPRESSION
     Route: 048
  7. UNSPECIFIED PATCHES AND LOZENGES [Concomitant]
  8. TOPAMAX [Concomitant]
     Indication: MOOD ALTERED

REACTIONS (3)
  - WEIGHT DECREASED [None]
  - OSTEOPOROSIS [None]
  - VITAMIN D DEFICIENCY [None]
